FAERS Safety Report 8001721-4 (Version None)
Quarter: 2011Q4

REPORT INFORMATION
  Report Type: 
  Country: None (occurrence: None)
  Receive Date: 20111222
  Receipt Date: 20111220
  Transmission Date: 20120403
  Serious: No
  Sender: FDA-Public Use
  Company Number: BR-JNJFOC-20111207520

PATIENT
  Age: 60 Year
  Sex: Male
  Weight: 66 kg

DRUGS (1)
  1. NICORETTE [Suspect]
     Indication: SMOKING CESSATION THERAPY
     Dosage: ABOUT TWO OR FOUR PIECES PER DAY
     Route: 048
     Dates: start: 20100301

REACTIONS (1)
  - INTENTIONAL DRUG MISUSE [None]
